FAERS Safety Report 10997587 (Version 8)
Quarter: 2016Q2

REPORT INFORMATION
  Report Type: Spontaneous
  Country: US (occurrence: US)
  Receive Date: 20150408
  Receipt Date: 20160421
  Transmission Date: 20160815
  Serious: Yes (Other)
  Sender: FDA-Public Use
  Company Number: US-PFIZER INC-2015114351

PATIENT
  Age: 64 Year
  Sex: Female
  Weight: 62.59 kg

DRUGS (6)
  1. IBRANCE [Suspect]
     Active Substance: PALBOCICLIB
     Dosage: 125 MG, CYCLIC (1-21Q28 DAYS)
     Route: 048
     Dates: start: 20151203
  2. IBRANCE [Suspect]
     Active Substance: PALBOCICLIB
     Dosage: 125 MG, DAILY
  3. IBRANCE [Suspect]
     Active Substance: PALBOCICLIB
     Dosage: 125 MG, CYCLIC (1-21Q28 DAYS)
     Route: 048
     Dates: start: 20150312
  4. IBRANCE [Suspect]
     Active Substance: PALBOCICLIB
     Indication: BREAST CANCER METASTATIC
     Dosage: 125 MG, DAILY
     Dates: start: 20150312
  5. IBRANCE [Suspect]
     Active Substance: PALBOCICLIB
     Dosage: 125 MG, CYCLIC (DAY 1-21 Q 28DAYS)
     Route: 048
     Dates: start: 20150312
  6. IBRANCE [Suspect]
     Active Substance: PALBOCICLIB
     Dosage: 125 MG, CYCLIC(D1-D21-Q28D)
     Route: 048
     Dates: start: 20150312

REACTIONS (15)
  - Sinusitis [Not Recovered/Not Resolved]
  - Nasopharyngitis [Unknown]
  - Condition aggravated [Unknown]
  - White blood cell count decreased [Unknown]
  - Glossodynia [Recovered/Resolved]
  - Nasal discomfort [Unknown]
  - Tendonitis [Unknown]
  - Stomatitis [Unknown]
  - Lacrimation increased [Unknown]
  - Insomnia [Unknown]
  - Epistaxis [Unknown]
  - Arthralgia [Not Recovered/Not Resolved]
  - Vision blurred [Unknown]
  - Pain [Unknown]
  - Arthralgia [Unknown]

NARRATIVE: CASE EVENT DATE: 20150604
